FAERS Safety Report 7910095-6 (Version None)
Quarter: 2011Q4

REPORT INFORMATION
  Report Type: 
  Country: None (occurrence: None)
  Receive Date: 20111111
  Receipt Date: 20111031
  Transmission Date: 20120403
  Serious: Yes (Hospitalization)
  Sender: FDA-Public Use
  Company Number: BR-BRISTOL-MYERS SQUIBB COMPANY-16224396

PATIENT
  Age: 61 Year
  Sex: Male

DRUGS (1)
  1. CISPLATIN [Suspect]

REACTIONS (1)
  - CEREBRAL ISCHAEMIA [None]
